FAERS Safety Report 10023972 (Version 1)
Quarter: 2014Q1

REPORT INFORMATION
  Report Type: Spontaneous
  Country: JP (occurrence: JP)
  Receive Date: 20140320
  Receipt Date: 20140320
  Transmission Date: 20141002
  Serious: Yes (Other)
  Sender: FDA-Public Use
  Company Number: JP-ASTELLAS-2014JP002446

PATIENT
  Sex: 0

DRUGS (8)
  1. PROGRAF [Suspect]
     Indication: PROPHYLAXIS AGAINST GRAFT VERSUS HOST DISEASE
     Route: 065
  2. PROGRAF [Suspect]
     Route: 065
  3. METHOTREXATE [Concomitant]
     Indication: PROPHYLAXIS AGAINST GRAFT VERSUS HOST DISEASE
     Route: 065
  4. CICLOSPORIN [Concomitant]
     Route: 065
  5. DEXAMETHASONE [Concomitant]
     Route: 065
  6. ETOPOSIDE [Concomitant]
     Route: 065
  7. FLUDARA [Concomitant]
     Indication: PREMEDICATION
     Dosage: 145 MG/M2, UNKNOWN/D
     Route: 065
  8. ALKERAN                            /00006401/ [Concomitant]
     Indication: PREMEDICATION
     Dosage: 140 MG/M2, UNKNOWN/D
     Route: 065

REACTIONS (5)
  - Drug ineffective [Unknown]
  - Graft versus host disease in skin [Recovering/Resolving]
  - Thrombotic microangiopathy [Unknown]
  - Renal impairment [Unknown]
  - Cardiac tamponade [Unknown]
